FAERS Safety Report 8959048 (Version 1)
Quarter: 2012Q4

REPORT INFORMATION
  Report Type: 
  Country: BE (occurrence: BE)
  Receive Date: 20121212
  Receipt Date: 20121212
  Transmission Date: 20130627
  Serious: Yes (Disabling)
  Sender: FDA-Public Use
  Company Number: BE-B.I. PHARMACEUTICALS,INC./RIDGEFIELD-2012-BL-00622BL

PATIENT
  Age: 77 Year
  Sex: Female
  Weight: 58 kg

DRUGS (4)
  1. PRADAXA [Suspect]
     Indication: ATRIAL FIBRILLATION
     Dosage: 300 mg
     Route: 048
     Dates: start: 20121102, end: 20121117
  2. CORDARONE [Concomitant]
     Route: 048
  3. PRAXILENE [Concomitant]
     Route: 048
  4. BETAHISTINE [Concomitant]
     Route: 048

REACTIONS (2)
  - Dizziness [Recovered/Resolved]
  - Nausea [Recovered/Resolved]
